FAERS Safety Report 15453234 (Version 3)
Quarter: 2018Q4

REPORT INFORMATION
  Report Type: Spontaneous
  Country: US (occurrence: US)
  Receive Date: 20181001
  Receipt Date: 20181025
  Transmission Date: 20190204
  Serious: Yes (Hospitalization, Other)
  Sender: FDA-Public Use
  Company Number: US-PFIZER INC-2018386555

PATIENT
  Age: 42 Year
  Sex: Female
  Weight: 86.18 kg

DRUGS (6)
  1. EFFEXOR XR [Suspect]
     Active Substance: VENLAFAXINE HYDROCHLORIDE
     Indication: DEPRESSION
     Dosage: 75 MG, 3X/DAY (3 TABLETS DAILY BY MOUTH)
     Route: 048
     Dates: start: 201704
  2. TRAZODONE [Concomitant]
     Active Substance: TRAZODONE HYDROCHLORIDE
     Indication: INSOMNIA
     Dosage: 200 MG, 1X/DAY (2 TABLETS ONCE DAILY BY MOUTH AT NIGHT)
     Route: 048
     Dates: start: 201704
  3. KEFLEX [Interacting]
     Active Substance: CEPHALEXIN
     Indication: SOFT TISSUE INFECTION
     Dosage: UNK, 2X/DAY (1 RED PILL TWICE DAILY BY MOUTH)
     Route: 048
     Dates: start: 20180613
  4. ALBUTEROL [SALBUTAMOL] [Concomitant]
     Active Substance: ALBUTEROL
     Indication: RESPIRATION ABNORMAL
     Dosage: UNK
     Dates: start: 2015
  5. EFFEXOR XR [Interacting]
     Active Substance: VENLAFAXINE HYDROCHLORIDE
     Dosage: 300 MG, 1X/DAY (TWO 150MG TABLETS ONCE DAILY BY MOUTH)
     Route: 048
  6. BUSPIRONE [Concomitant]
     Active Substance: BUSPIRONE HYDROCHLORIDE
     Indication: ANXIETY
     Dosage: 15 MG, 3X/DAY
     Route: 048
     Dates: start: 201704

REACTIONS (4)
  - Hallucination, auditory [Recovered/Resolved]
  - Schizophrenia [Unknown]
  - Depression [Recovered/Resolved]
  - Drug interaction [Recovered/Resolved]

NARRATIVE: CASE EVENT DATE: 20180620
